FAERS Safety Report 8582573-0 (Version None)
Quarter: 2012Q3

REPORT INFORMATION
  Report Type: 
  Country: None (occurrence: None)
  Receive Date: 20120809
  Receipt Date: 20120807
  Transmission Date: 20120928
  Serious: Yes (Hospitalization)
  Sender: FDA-Public Use
  Company Number: US-BAYER-2012-065719

PATIENT
  Age: 78 Year
  Sex: Female
  Weight: 46 kg

DRUGS (5)
  1. ALENDRONATE SODIUM [Concomitant]
     Indication: OSTEOPOROSIS
     Dosage: 70 MG, OW
     Dates: start: 20091031
  2. CIPROFLOXACIN HCL [Suspect]
     Dosage: UNK
  3. ACETAMINOPHEN [Concomitant]
     Indication: PAIN
     Dosage: 1000 MG, PRN
  4. COUMADIN [Concomitant]
     Indication: THROMBOSIS PROPHYLAXIS
     Dosage: DOSE = VARIABLE; DAILY
     Dates: start: 20091027
  5. METOPROLOL TARTRATE [Concomitant]
     Indication: HYPERTENSION
     Dosage: 200 MG, BID
     Dates: start: 20091001

REACTIONS (1)
  - WARM TYPE HAEMOLYTIC ANAEMIA [None]
